FAERS Safety Report 4686051-0 (Version None)
Quarter: 2005Q2

REPORT INFORMATION
  Report Type: 
  Country: None (occurrence: None)
  Receive Date: 20050609
  Receipt Date: 20050517
  Transmission Date: 20051028
  Serious: Yes (Other)
  Sender: FDA-Public Use
  Company Number: US-BRISTOL-MYERS SQUIBB COMPANY-12972956

PATIENT
  Age: 59 Year
  Sex: Female
  Weight: 66 kg

DRUGS (10)
  1. ERBITUX [Suspect]
     Indication: COLON CANCER
     Dosage: FIRST DOSE, OVER 1 HOUR = 680 MG.  RE-CHALLENGED 0N 29-APR-2005 WITH 680 MG.
     Route: 042
     Dates: start: 20050422, end: 20050422
  2. ALOXI [Concomitant]
     Indication: PREMEDICATION
     Route: 042
     Dates: start: 20050422, end: 20050422
  3. DECADRON [Concomitant]
     Indication: PREMEDICATION
     Route: 042
     Dates: start: 20050422, end: 20050422
  4. DIPHENHYDRAMINE HCL [Concomitant]
     Indication: PREMEDICATION
     Route: 042
     Dates: start: 20050422, end: 20050422
  5. TAGAMET [Concomitant]
     Indication: PREMEDICATION
     Route: 042
     Dates: start: 20050422, end: 20050422
  6. CALCIUM GLUCONATE [Concomitant]
  7. COUMADIN [Concomitant]
  8. INNOHEP [Concomitant]
  9. MULTI-VITAMINS [Concomitant]
  10. VITAMIN B6 [Concomitant]

REACTIONS (1)
  - INFUSION RELATED REACTION [None]
